FAERS Safety Report 20842914 (Version 1)
Quarter: 2022Q2

REPORT INFORMATION
  Report Type: Spontaneous
  Country: US (occurrence: None)
  Receive Date: 20220517
  Receipt Date: 20220517
  Transmission Date: 20220720
  Serious: Yes (Hospitalization)
  Sender: FDA-Public Use
  Company Number: None

PATIENT
  Sex: Male
  Weight: 76.6 kg

DRUGS (4)
  1. CISPLATIN [Suspect]
     Active Substance: CISPLATIN
  2. IFOSFAMIDE [Concomitant]
     Active Substance: IFOSFAMIDE
  3. TAXOL [Concomitant]
     Active Substance: PACLITAXEL
  4. NEULASTA [Concomitant]
     Active Substance: PEGFILGRASTIM

REACTIONS (4)
  - Neutropenic sepsis [None]
  - Platelet count decreased [None]
  - SARS-CoV-2 test positive [None]
  - COVID-19 [None]

NARRATIVE: CASE EVENT DATE: 20220507
